FAERS Safety Report 4678945-7 (Version None)
Quarter: 2005Q2

REPORT INFORMATION
  Report Type: 
  Country: None (occurrence: None)
  Receive Date: 20050531
  Receipt Date: 20050523
  Transmission Date: 20051028
  Serious: Yes (Other)
  Sender: FDA-Public Use
  Company Number: 2005078588

PATIENT
  Sex: Female
  Weight: 51.7101 kg

DRUGS (7)
  1. DILANTIN KAPSEAL [Suspect]
     Indication: CONVULSION
     Dosage: 330 MG (2 IN 1 D), ORAL
     Route: 048
  2. CITRACAL (CALCIUM CITRATE) [Suspect]
     Indication: MINERAL SUPPLEMENTATION
  3. MULTIVITAMIN [Suspect]
     Indication: ILL-DEFINED DISORDER
     Dosage: ORAL
     Route: 048
  4. MYSOLINE [Concomitant]
  5. VITAMIN B6 (VITAMIN B6) [Concomitant]
  6. VITAMIN E [Concomitant]
  7. GLUCOSAMINE/CHONDROITIN (ASCORBIC ACID, CHONDROITIN SULFATE, GLUCOSAMI [Concomitant]

REACTIONS (4)
  - ARTHRITIS [None]
  - CONVULSION [None]
  - DRUG INEFFECTIVE [None]
  - DRUG INTERACTION [None]
